FAERS Safety Report 6419161-8 (Version None)
Quarter: 2009Q4

REPORT INFORMATION
  Report Type: 
  Country: None (occurrence: None)
  Receive Date: 20091029
  Receipt Date: 20091019
  Transmission Date: 20100525
  Serious: Yes (Hospitalization)
  Sender: FDA-Public Use
  Company Number: US-ROCHE-664350

PATIENT
  Age: 47 Year
  Sex: Female

DRUGS (2)
  1. CAPECITABINE [Suspect]
     Dosage: UNK
     Route: 048
  2. BEVACIZUMAB [Suspect]
     Dosage: 15 MG/KG, Q3W
     Route: 040
     Dates: start: 20090914

REACTIONS (2)
  - RENAL FAILURE [None]
  - RESPIRATORY FAILURE [None]
